FAERS Safety Report 5030806-X (Version None)
Quarter: 2006Q2

REPORT INFORMATION
  Report Type: 
  Country: None (occurrence: None)
  Receive Date: 20060614
  Receipt Date: 20060605
  Transmission Date: 20061013
  Serious: Yes (Life-Threatening, Other)
  Sender: FDA-Public Use
  Company Number: 823#3#2006-00002

PATIENT
  Age: 82 Year
  Sex: Male

DRUGS (2)
  1. ISOSORBIDE MONONITRATE [Suspect]
     Indication: CORONARY ARTERY DISEASE
     Dosage: 100 MG
     Route: 048
     Dates: start: 20060525, end: 20060526
  2. FUROSEMIDE [Concomitant]

REACTIONS (2)
  - FACE OEDEMA [None]
  - TONGUE OEDEMA [None]
